FAERS Safety Report 7985161-X (Version None)
Quarter: 2011Q4

REPORT INFORMATION
  Report Type: 
  Country: None (occurrence: None)
  Receive Date: 20111216
  Receipt Date: 20111205
  Transmission Date: 20120403
  Serious: Yes (Disabling)
  Sender: FDA-Public Use
  Company Number: JP-SANOFI-AVENTIS-2011SA073084

PATIENT
  Age: 51 Year
  Sex: Female

DRUGS (1)
  1. ALLEGRA [Suspect]
     Indication: RHINITIS ALLERGIC
     Route: 048
     Dates: start: 20110806

REACTIONS (1)
  - PAROSMIA [None]
